FAERS Safety Report 8984587 (Version 1)
Quarter: 2012Q4

REPORT INFORMATION
  Report Type: 
  Country: BR (occurrence: BR)
  Receive Date: 20121225
  Receipt Date: 20121225
  Transmission Date: 20130627
  Serious: Yes (Other)
  Sender: FDA-Public Use
  Company Number: BR-SANOFI-AVENTIS-2012SA048983

PATIENT
  Age: 40 Year
  Sex: Female
  Weight: 79 kg

DRUGS (2)
  1. CLEXANE [Suspect]
     Indication: ANTICOAGULANT THERAPY
     Route: 058
     Dates: start: 201204, end: 201210
  2. AAS INFANTIL [Suspect]
     Indication: ANTICOAGULANT THERAPY
     Route: 048
     Dates: start: 201204, end: 20121019

REACTIONS (3)
  - Premature separation of placenta [Unknown]
  - Exposure during pregnancy [Unknown]
  - Prescribed overdose [Unknown]
